FAERS Safety Report 6919027-0 (Version None)
Quarter: 2010Q3

REPORT INFORMATION
  Report Type: 
  Country: None (occurrence: None)
  Receive Date: 20100727
  Receipt Date: 20100707
  Transmission Date: 20110219
  Serious: No
  Sender: FDA-Public Use
  Company Number: 2010-00517

PATIENT
  Sex: Female

DRUGS (2)
  1. ZICAM COLD REMEDY NASAL GEL [Suspect]
     Indication: NASOPHARYNGITIS
     Dosage: AS DIRECTED, APX 8 DAYS
     Dates: start: 20070411, end: 20070418
  2. ZICAM COLD REMEDY GEL SWABS [Suspect]
     Indication: NASOPHARYNGITIS
     Dosage: AS DIRECTED, APX 8 DAYS
     Dates: start: 20070411, end: 20070418

REACTIONS (1)
  - ANOSMIA [None]
